FAERS Safety Report 7552024-3 (Version None)
Quarter: 2011Q2

REPORT INFORMATION
  Report Type: 
  Country: None (occurrence: None)
  Receive Date: 20110609
  Receipt Date: 20110524
  Transmission Date: 20111010
  Serious: Yes (Death, Hospitalization)
  Sender: FDA-Public Use
  Company Number: 2011MA006456

PATIENT
  Age: 75 Year
  Sex: Male

DRUGS (2)
  1. CYCLOPHOSPHAMIDE [Concomitant]
  2. FLUDARABINE PHOSPHATE [Suspect]
     Indication: LYMPHOCYTIC LEUKAEMIA

REACTIONS (6)
  - HODGKIN'S DISEASE [None]
  - EPSTEIN-BARR VIRUS INFECTION [None]
  - RICHTER'S SYNDROME [None]
  - BLOOD TRIGLYCERIDES INCREASED [None]
  - BLOOD FIBRINOGEN DECREASED [None]
  - HISTIOCYTOSIS HAEMATOPHAGIC [None]
